FAERS Safety Report 25470909 (Version 2)
Quarter: 2025Q3

REPORT INFORMATION
  Report Type: Spontaneous
  Country: CH (occurrence: CH)
  Receive Date: 20250624
  Receipt Date: 20250703
  Transmission Date: 20251020
  Serious: Yes (Hospitalization, Other)
  Sender: ALKEM
  Company Number: None

PATIENT
  Age: 27 Year
  Sex: Female
  Weight: 62 kg

DRUGS (7)
  1. ARIPIPRAZOLE [Suspect]
     Active Substance: ARIPIPRAZOLE
     Indication: Product used for unknown indication
     Route: 065
  2. GABAPENTIN [Suspect]
     Active Substance: GABAPENTIN
     Indication: Product used for unknown indication
     Route: 065
  3. QUETIAPINE FUMARATE [Suspect]
     Active Substance: QUETIAPINE FUMARATE
     Indication: Product used for unknown indication
     Route: 065
  4. TRAZODONE [Suspect]
     Active Substance: TRAZODONE HYDROCHLORIDE
     Indication: Product used for unknown indication
     Route: 065
  5. CLONAZEPAM [Suspect]
     Active Substance: CLONAZEPAM
     Indication: Product used for unknown indication
     Route: 065
  6. HYDROXYZINE [Suspect]
     Active Substance: HYDROXYZINE HYDROCHLORIDE
     Indication: Product used for unknown indication
     Route: 065
  7. RISPERIDONE [Suspect]
     Active Substance: RISPERIDONE
     Indication: Antipsychotic therapy
     Route: 065

REACTIONS (5)
  - Self-destructive behaviour [Unknown]
  - Urinary tract infection [Recovered/Resolved]
  - Urinary retention [Recovered/Resolved]
  - Aggression [Unknown]
  - Constipation [Recovered/Resolved]
